FAERS Safety Report 5988598-3 (Version None)
Quarter: 2008Q4

REPORT INFORMATION
  Report Type: 
  Country: None (occurrence: None)
  Receive Date: 20081210
  Receipt Date: 20081128
  Transmission Date: 20090506
  Serious: Yes (Other)
  Sender: FDA-Public Use
  Company Number: HK-BAYER-200830910GPV

PATIENT
  Age: 38 Year
  Sex: Female

DRUGS (2)
  1. YASMIN [Suspect]
     Indication: CONTRACEPTION
     Route: 048
     Dates: start: 20040101, end: 20080101
  2. THYROCIN [Concomitant]
     Indication: THYROID CANCER
     Dates: start: 20080930

REACTIONS (2)
  - BREAST TENDERNESS [None]
  - THYROID CANCER [None]
